FAERS Safety Report 15878547 (Version 1)
Quarter: 2019Q1

REPORT INFORMATION
  Report Type: Spontaneous
  Country: IT (occurrence: IT)
  Receive Date: 20190128
  Receipt Date: 20190128
  Transmission Date: 20190417
  Serious: Yes (Other)
  Sender: FDA-Public Use
  Company Number: IT-TEVA-2019-IT-1003575

PATIENT
  Age: 45 Year
  Sex: Male

DRUGS (1)
  1. TENOFOVIR DISOPROXIL [Suspect]
     Active Substance: TENOFOVIR DISOPROXIL
     Indication: HEPATITIS B
     Dosage: 1 MILLIGRAM DAILY;
     Route: 048
     Dates: start: 20181011, end: 20190109

REACTIONS (2)
  - Dyspnoea [Unknown]
  - Flatulence [Unknown]

NARRATIVE: CASE EVENT DATE: 20190109
